FAERS Safety Report 10200249 (Version 1)
Quarter: 2014Q2

REPORT INFORMATION
  Report Type: Spontaneous
  Country: US (occurrence: US)
  Receive Date: 20140527
  Receipt Date: 20140527
  Transmission Date: 20141212
  Serious: No
  Sender: FDA-Public Use
  Company Number: US-SA-2013SA111274

PATIENT
  Age: 63 Year
  Sex: Male
  Weight: 108.86 kg

DRUGS (18)
  1. CAMPATH [Suspect]
     Indication: CHRONIC LYMPHOCYTIC LEUKAEMIA
     Dosage: FIRST DOSE A OF 5 DAY DOSE ESCALATION TO 30 MG ON DAY 1, 3 AND 5
     Route: 042
     Dates: start: 20131029, end: 20131127
  2. XANAX [Suspect]
     Indication: PRODUCT USED FOR UNKNOWN INDICATION
     Route: 048
  3. BENADRYL [Suspect]
     Indication: PRODUCT USED FOR UNKNOWN INDICATION
     Route: 048
  4. KLOR-CON [Concomitant]
     Route: 048
  5. TYLENOL [Concomitant]
     Route: 048
  6. ZYLOPRIM [Concomitant]
     Route: 048
  7. ASPIRIN [Concomitant]
     Route: 048
  8. DOXYCYCLINE [Concomitant]
     Route: 048
  9. FAMCICLOVIR [Concomitant]
     Route: 048
  10. PEPCID [Concomitant]
     Route: 048
  11. HYDRODIURIL [Concomitant]
     Route: 048
  12. FRUCTOSE/LACTOBACILLUS CASEI VAR RHAMNOSUS/MALTODEXTRIN [Concomitant]
     Route: 048
  13. SOLU-MEDROL [Concomitant]
     Route: 042
  14. CENTRUM SILVER [Concomitant]
     Route: 048
  15. ZOFRAN [Concomitant]
     Route: 048
  16. SENNA [Concomitant]
     Route: 048
  17. VITAMIN B1 [Concomitant]
     Route: 048
  18. ALLBEE WITH C [Concomitant]
     Route: 048

REACTIONS (4)
  - Hypotension [Recovered/Resolved]
  - Dizziness [Recovered/Resolved]
  - Hyperhidrosis [Recovered/Resolved]
  - Pallor [Recovered/Resolved]
